FAERS Safety Report 6257207-0 (Version None)
Quarter: 2009Q3

REPORT INFORMATION
  Report Type: 
  Country: None (occurrence: None)
  Receive Date: 20090706
  Receipt Date: 20090623
  Transmission Date: 20100115
  Serious: Yes (Death)
  Sender: FDA-Public Use
  Company Number: GB-ELI_LILLY_AND_COMPANY-GB200906005267

PATIENT
  Age: 67 Year
  Sex: Female

DRUGS (2)
  1. ZYPREXA [Suspect]
     Indication: BIPOLAR DISORDER
  2. LITHIUM [Concomitant]
     Indication: BIPOLAR DISORDER

REACTIONS (3)
  - COMPLETED SUICIDE [None]
  - DEPRESSED MOOD [None]
  - DRUG INEFFECTIVE [None]
